FAERS Safety Report 6108403-4 (Version None)
Quarter: 2009Q1

REPORT INFORMATION
  Report Type: 
  Country: None (occurrence: None)
  Receive Date: 20090309
  Receipt Date: 20090227
  Transmission Date: 20090719
  Serious: Yes (Other)
  Sender: FDA-Public Use
  Company Number: PHHY2009CA07391

PATIENT
  Sex: Female

DRUGS (2)
  1. ACLASTA [Suspect]
     Dosage: ONCE YEARLY
     Route: 042
  2. COUMADIN [Suspect]
     Dosage: 4 MG

REACTIONS (1)
  - INTERNATIONAL NORMALISED RATIO INCREASED [None]
